FAERS Safety Report 4641272-8 (Version None)
Quarter: 2005Q2

REPORT INFORMATION
  Report Type: 
  Country: None (occurrence: None)
  Receive Date: 20050421
  Receipt Date: 20050415
  Transmission Date: 20051028
  Serious: Yes (Hospitalization)
  Sender: FDA-Public Use
  Company Number: US-JNJFOC-20050404466

PATIENT
  Age: 87 Year
  Sex: Female

DRUGS (5)
  1. EXTRA STRENGTH TYLENOL [Suspect]
  2. EXTRA STRENGTH TYLENOL [Suspect]
     Indication: SCIATICA
  3. ATENOLOL [Concomitant]
  4. DIURETIC [Concomitant]
     Dosage: 5 OR 10 MG, QD
  5. MONOPRIL [Concomitant]

REACTIONS (3)
  - DYSPNOEA [None]
  - ERYTHEMA [None]
  - THROMBOPHLEBITIS SUPERFICIAL [None]
